FAERS Safety Report 4701079-X (Version None)
Quarter: 2005Q2

REPORT INFORMATION
  Report Type: 
  Country: None (occurrence: None)
  Receive Date: 20050624
  Receipt Date: 20041105
  Transmission Date: 20051028
  Serious: Yes (Other)
  Sender: FDA-Public Use
  Company Number: 2004109780

PATIENT
  Age: 17 Year
  Sex: Female
  Weight: 54.4316 kg

DRUGS (4)
  1. CELEBREX [Suspect]
     Indication: LIGAMENT REPAIR
     Dosage: 400 MG (200 MG 2 IN 1D) ORAL
     Route: 048
     Dates: start: 20040201
  2. OTHER DERMATOLOGICAL PREPARATIONS (OTHER DERMATOLOGICAL PREPARATIONS) [Suspect]
     Indication: ILL-DEFINED DISORDER
     Dosage: TOPICAL
     Route: 061
     Dates: start: 20041104
  3. VITAMINS (VITAMINS) [Concomitant]
  4. OTHER DERMATOLOGICAL PREPARATIONS (OTHER DERMATOLOGICAL PREPARATIONS) [Concomitant]

REACTIONS (5)
  - JOINT SWELLING [None]
  - POLYMENORRHOEA [None]
  - POST PROCEDURAL OEDEMA [None]
  - RASH ERYTHEMATOUS [None]
  - RASH MACULO-PAPULAR [None]
